FAERS Safety Report 5968414-6 (Version None)
Quarter: 2008Q4

REPORT INFORMATION
  Report Type: 
  Country: None (occurrence: None)
  Receive Date: 20081126
  Receipt Date: 20081126
  Transmission Date: 20090506
  Serious: Yes (Hospitalization)
  Sender: FDA-Public Use
  Company Number: GR-BRISTOL-MYERS SQUIBB COMPANY-14420731

PATIENT
  Age: 69 Year
  Sex: Female
  Weight: 46 kg

DRUGS (5)
  1. BARACLUDE [Suspect]
     Indication: HEPATITIS B
     Dates: start: 20080215, end: 20081126
  2. XAGRID [Concomitant]
     Indication: THROMBOCYTHAEMIA
     Dosage: 0,5MGX2 TWICE IN DAY
  3. DIOVAN COMP [Concomitant]
     Indication: HYPERTENSION
  4. MEDROL [Concomitant]
     Indication: INTERSTITIAL LUNG DISEASE
  5. CORTICOSTEROID [Concomitant]
     Dates: start: 19900101

REACTIONS (1)
  - PANCREATITIS ACUTE [None]
